FAERS Safety Report 14252726 (Version 3)
Quarter: 2018Q4

REPORT INFORMATION
  Report Type: Spontaneous
  Country: JP (occurrence: JP)
  Receive Date: 20171205
  Receipt Date: 20181008
  Transmission Date: 20190204
  Serious: Yes (Hospitalization, Other)
  Sender: FDA-Public Use
  Company Number: JP-PFIZER INC-2017516774

PATIENT
  Age: 56 Year
  Sex: Male
  Weight: 50.5 kg

DRUGS (20)
  1. MINOCYCLINE [Concomitant]
     Active Substance: MINOCYCLINE\MINOCYCLINE HYDROCHLORIDE
     Indication: PLEURISY
     Dosage: 100 MG, 2X/DAY (Q12H ON DAY 6)
  2. LEVOFLOXACIN. [Concomitant]
     Active Substance: LEVOFLOXACIN
     Indication: SEPTIC SHOCK
     Dosage: UNK
  3. PREDNISOLONE. [Concomitant]
     Active Substance: PREDNISOLONE
     Indication: CHEST PAIN
     Dosage: 2.5 MG, DAILY
  4. MYCOPHENOLATE MOFETIL. [Concomitant]
     Active Substance: MYCOPHENOLATE MOFETIL
     Indication: CHEST PAIN
     Dosage: 500 MG, DAILY
  5. MEROPENEM. [Concomitant]
     Active Substance: MEROPENEM
     Indication: PLEURISY
  6. CLINDAMYCIN. [Concomitant]
     Active Substance: CLINDAMYCIN
     Indication: PNEUMONIA
     Dosage: 600 MG, 4X/DAY
  7. MEROPENEM. [Concomitant]
     Active Substance: MEROPENEM
     Indication: SEPTIC SHOCK
     Dosage: UNK
  8. MEROPENEM. [Concomitant]
     Active Substance: MEROPENEM
     Indication: PNEUMONIA
  9. CEFTRIAXONE SODIUM. [Suspect]
     Active Substance: CEFTRIAXONE SODIUM
     Dosage: 2 G, DAILY (ON DAY 18)
  10. MINOCYCLINE [Concomitant]
     Active Substance: MINOCYCLINE\MINOCYCLINE HYDROCHLORIDE
     Indication: PNEUMONIA
  11. MINOCYCLINE [Concomitant]
     Active Substance: MINOCYCLINE\MINOCYCLINE HYDROCHLORIDE
     Indication: SEPTIC SHOCK
  12. LEVOFLOXACIN. [Concomitant]
     Active Substance: LEVOFLOXACIN
     Indication: PLEURISY
     Dosage: 250 MG, ALTERNATE DAY (Q48H)
  13. CLINDAMYCIN. [Concomitant]
     Active Substance: CLINDAMYCIN
     Indication: SEPTIC SHOCK
  14. EVEROLIMUS. [Concomitant]
     Active Substance: EVEROLIMUS
     Indication: CHEST PAIN
     Dosage: 1 MG, DAILY
  15. CEFTRIAXONE SODIUM. [Suspect]
     Active Substance: CEFTRIAXONE SODIUM
     Indication: PNEUMONIA
     Dosage: UNK, DAILY (1 TO 2 G PER 24 H)
  16. LEVOFLOXACIN. [Concomitant]
     Active Substance: LEVOFLOXACIN
     Indication: PNEUMONIA
  17. CEFTRIAXONE SODIUM. [Suspect]
     Active Substance: CEFTRIAXONE SODIUM
     Indication: PLEURISY
     Dosage: UNK, (HIGH DOSE CONTINUOUSLY ADMINISTERED FOR 7 DAYS)
  18. CYCLOSPORINE. [Concomitant]
     Active Substance: CYCLOSPORINE
     Indication: CHEST PAIN
     Dosage: 120 MG, DAILY
  19. CEFTRIAXONE SODIUM. [Suspect]
     Active Substance: CEFTRIAXONE SODIUM
     Indication: SEPTIC SHOCK
     Dosage: 2 G, 2X/DAY (Q12H ON DAY 6)
  20. CLINDAMYCIN. [Concomitant]
     Active Substance: CLINDAMYCIN
     Indication: PLEURISY

REACTIONS (3)
  - Toxic encephalopathy [Recovered/Resolved]
  - Neurotoxicity [Recovered/Resolved]
  - Drug ineffective [Recovered/Resolved]
